FAERS Safety Report 25363458 (Version 2)
Quarter: 2025Q2

REPORT INFORMATION
  Report Type: Report from Study
  Country: US (occurrence: US)
  Receive Date: 20250527
  Receipt Date: 20250609
  Transmission Date: 20250716
  Serious: Yes (Other)
  Sender: AIMMUNE
  Company Number: US-ZENPEP LLC-2025AIMT00498

PATIENT

DRUGS (2)
  1. ZENPEP [Suspect]
     Active Substance: PANCRELIPASE AMYLASE\PANCRELIPASE LIPASE\PANCRELIPASE PROTEASE
     Indication: Pancreatic failure
     Route: 048
     Dates: start: 20241219
  2. ZENPEP [Suspect]
     Active Substance: PANCRELIPASE AMYLASE\PANCRELIPASE LIPASE\PANCRELIPASE PROTEASE
     Route: 048

REACTIONS (10)
  - Haematochezia [Unknown]
  - Product use complaint [Unknown]
  - Arthralgia [Unknown]
  - Tongue discomfort [Unknown]
  - Oral discomfort [Unknown]
  - Oropharyngeal pain [Unknown]
  - Pruritus [Unknown]
  - Abdominal discomfort [Unknown]
  - Abdominal distension [Unknown]
  - Constipation [Unknown]
